FAERS Safety Report 17679609 (Version 1)
Quarter: 2020Q2

REPORT INFORMATION
  Report Type: Report from Study
  Country: US (occurrence: US)
  Receive Date: 20200417
  Receipt Date: 20200417
  Transmission Date: 20200714
  Serious: Yes (Other)
  Sender: FDA-Public Use
  Company Number: US-ROCHE-2582811

PATIENT
  Sex: Male

DRUGS (11)
  1. SIMVASTATIN. [Concomitant]
     Active Substance: SIMVASTATIN
     Route: 065
  2. VITAMIN D2 [Concomitant]
     Active Substance: ERGOCALCIFEROL
  3. FISH OIL [Concomitant]
     Active Substance: FISH OIL
     Route: 048
  4. LISINOPRIL. [Concomitant]
     Active Substance: LISINOPRIL
     Route: 065
  5. ACTEMRA [Suspect]
     Active Substance: TOCILIZUMAB
     Indication: TEMPORAL ARTERITIS
     Dosage: INJECT 162MG SUBCUTANEOUSLY EVERY 7 DAY(S) AS DIRE
     Route: 058
  6. ASPIR 81 [Concomitant]
     Active Substance: ASPIRIN
  7. PREDNISONE. [Concomitant]
     Active Substance: PREDNISONE
     Route: 048
  8. METHOTREXATE SODIUM. [Concomitant]
     Active Substance: METHOTREXATE SODIUM
     Dosage: 4 TABLETS EVERY WEEK
     Route: 048
  9. COLCHICINE. [Concomitant]
     Active Substance: COLCHICINE
     Route: 048
  10. FOLIC ACID. [Concomitant]
     Active Substance: FOLIC ACID
     Route: 048
  11. LEVOFLOXACIN. [Concomitant]
     Active Substance: LEVOFLOXACIN
     Route: 048

REACTIONS (1)
  - Bladder cancer [Unknown]
